FAERS Safety Report 21177060 (Version 1)
Quarter: 2022Q3

REPORT INFORMATION
  Report Type: Report from Study
  Country: CO (occurrence: CO)
  Receive Date: 20220805
  Receipt Date: 20220805
  Transmission Date: 20221027
  Serious: Yes (Other)
  Sender: FDA-Public Use
  Company Number: CO-ABBVIE-22K-036-4492938-00

PATIENT
  Sex: Female
  Weight: 58 kg

DRUGS (5)
  1. HUMIRA [Suspect]
     Active Substance: ADALIMUMAB
     Indication: Rheumatoid arthritis
     Dosage: HUMIRA AC
     Route: 058
     Dates: end: 20220709
  2. HUMIRA [Suspect]
     Active Substance: ADALIMUMAB
     Indication: Rheumatoid arthritis
     Route: 058
     Dates: start: 20120202
  3. CALCIUM [Concomitant]
     Active Substance: CALCIUM
     Indication: Bone disorder
     Dosage: UNKNOWN
     Route: 048
  4. BIO CALCIUM [Concomitant]
     Indication: Bone disorder
     Dosage: UNKNOWN
  5. CALCITRIOL [Concomitant]
     Active Substance: CALCITRIOL
     Indication: Bone disorder
     Dosage: UNKNOWN

REACTIONS (2)
  - Osteoarthritis [Recovered/Resolved]
  - Cartilage injury [Unknown]
